FAERS Safety Report 12877620 (Version 1)
Quarter: 2016Q4

REPORT INFORMATION
  Report Type: Spontaneous
  Country: MX (occurrence: MX)
  Receive Date: 20161024
  Receipt Date: 20161024
  Transmission Date: 20170207
  Serious: Yes (Other)
  Sender: FDA-Public Use
  Company Number: MX-BAYER-2016-199970

PATIENT
  Age: 46 Year
  Sex: Female
  Weight: 79 kg

DRUGS (1)
  1. ASPIRINA PROTECT [Suspect]
     Active Substance: ASPIRIN
     Indication: HYPERTENSION
     Dosage: 1 DF, QD
     Dates: start: 20160918, end: 20160923

REACTIONS (3)
  - Vasculitis [Not Recovered/Not Resolved]
  - Protein total increased [Unknown]
  - Back pain [Not Recovered/Not Resolved]
